FAERS Safety Report 10746310 (Version 2)
Quarter: 2015Q2

REPORT INFORMATION
  Report Type: Spontaneous
  Country: US (occurrence: None)
  Receive Date: 20150120
  Receipt Date: 20150420
  Transmission Date: 20150821
  Serious: No
  Sender: FDA-Public Use
  Company Number: AEGR000797

PATIENT
  Age: 54 Year
  Sex: Female
  Weight: 124.7 kg

DRUGS (11)
  1. LOSARTAN (LOSARTAN) [Concomitant]
     Active Substance: LOSARTAN
  2. JUXTAPID [Suspect]
     Active Substance: LOMITAPIDE MESYLATE
     Indication: TYPE IIA HYPERLIPIDAEMIA
     Route: 048
     Dates: start: 201403, end: 20140816
  3. SYNTHROID [Concomitant]
     Active Substance: LEVOTHYROXINE SODIUM
  4. LIVALO (PITAVASTATIN CALCIUM) [Concomitant]
  5. VITAMIN B 12 (CYANOCOBALAMIN) [Concomitant]
  6. LAMICTAL [Concomitant]
     Active Substance: LAMOTRIGINE
  7. NEXIUM [Concomitant]
     Active Substance: ESOMEPRAZOLE MAGNESIUM
  8. VITAMIN D3 [Concomitant]
     Active Substance: CHOLECALCIFEROL
  9. ATIVAN [Concomitant]
     Active Substance: LORAZEPAM
  10. MIRALAX (MACROGOL) [Concomitant]
  11. ASPIRIN (ACETYLSALICYLIC ACID) [Concomitant]
     Active Substance: ASPIRIN

REACTIONS (16)
  - Paraesthesia [None]
  - Weight decreased [None]
  - Dizziness [None]
  - Sensory disturbance [None]
  - Anxiety [None]
  - Blood glucose decreased [None]
  - Anaemia [None]
  - Fat tissue increased [None]
  - Food intolerance [None]
  - Therapy cessation [None]
  - Memory impairment [None]
  - Panic attack [None]
  - Blood cholesterol abnormal [None]
  - Gastric disorder [None]
  - Hunger [None]
  - Hypotension [None]
